FAERS Safety Report 6804906-5 (Version None)
Quarter: 2010Q2

REPORT INFORMATION
  Report Type: 
  Country: None (occurrence: None)
  Receive Date: 20100628
  Receipt Date: 20070711
  Transmission Date: 20101027
  Serious: No
  Sender: FDA-Public Use
  Company Number: US-PFIZER INC-2007057444

PATIENT
  Sex: Female

DRUGS (7)
  1. XALATAN [Suspect]
     Indication: GLAUCOMA
     Dates: start: 20070619
  2. TIMOLOL MALEATE [Concomitant]
  3. ALL OTHER THERAPEUTIC PRODUCTS [Concomitant]
  4. LANTUS [Concomitant]
  5. BENICAR [Concomitant]
  6. ACTOS [Concomitant]
  7. PREMPRO [Concomitant]

REACTIONS (2)
  - RASH [None]
  - RASH MACULAR [None]
